FAERS Safety Report 17731639 (Version 1)
Quarter: 2020Q2

REPORT INFORMATION
  Report Type: Report from Study
  Country: ES (occurrence: ES)
  Receive Date: 20200501
  Receipt Date: 20200501
  Transmission Date: 20200714
  Serious: Yes (Life-Threatening, Hospitalization)
  Sender: FDA-Public Use
  Company Number: ES-TEVA-2020-ES-1228447

PATIENT
  Age: 74 Year
  Sex: Female

DRUGS (6)
  1. ACETILSALICILICO ACIDO (176A) [Concomitant]
     Active Substance: ASPIRIN
     Indication: PROPHYLAXIS
     Dosage: 100 MG
  2. LOSARTAN (7157A) [Concomitant]
     Active Substance: LOSARTAN
     Indication: HYPERTENSION
     Dosage: 50 MG
     Route: 048
     Dates: start: 20150907, end: 20170522
  3. IVABRADINA (2992A) [Interacting]
     Active Substance: IVABRADINE
     Dosage: 4 MG
     Route: 048
     Dates: start: 20150518, end: 20170517
  4. ALDACTONE [Concomitant]
     Active Substance: SPIRONOLACTONE
     Dosage: 50 MG
     Route: 048
     Dates: start: 20150518
  5. FUROSEMIDA (1615A) [Concomitant]
     Active Substance: FUROSEMIDE
     Dosage: 40 MG
     Route: 048
     Dates: start: 20150402, end: 20170522
  6. CARVEDILOL (2431A) [Suspect]
     Active Substance: CARVEDILOL
     Dosage: 12.5 MG
     Route: 048
     Dates: start: 201512, end: 20170517

REACTIONS (2)
  - Drug interaction [Unknown]
  - Atrioventricular block [Recovered/Resolved with Sequelae]

NARRATIVE: CASE EVENT DATE: 20170514
